FAERS Safety Report 11782063 (Version 10)
Quarter: 2017Q3

REPORT INFORMATION
  Report Type: Spontaneous
  Country: US (occurrence: US)
  Receive Date: 20151126
  Receipt Date: 20170821
  Transmission Date: 20171127
  Serious: No
  Sender: FDA-Public Use
  Company Number: US-ASTRAZENECA-2015SE90646

PATIENT
  Age: 29735 Day
  Sex: Female

DRUGS (15)
  1. SERTRALINE [Concomitant]
     Active Substance: SERTRALINE HYDROCHLORIDE
  2. COENZYME Q10 [Concomitant]
     Active Substance: UBIDECARENONE
  3. IRESSA [Suspect]
     Active Substance: GEFITINIB
     Indication: LUNG NEOPLASM MALIGNANT
     Route: 048
     Dates: start: 20150906
  4. NEO-POLY-DEX OPTH [Concomitant]
  5. IRESSA [Suspect]
     Active Substance: GEFITINIB
     Indication: LUNG NEOPLASM MALIGNANT
     Route: 048
     Dates: start: 2015
  6. IRESSA [Suspect]
     Active Substance: GEFITINIB
     Indication: LUNG NEOPLASM MALIGNANT
     Route: 048
  7. ESZOPICLONE. [Concomitant]
     Active Substance: ESZOPICLONE
  8. OMEGA 3 [Concomitant]
     Active Substance: OMEGA-3 FATTY ACIDS
  9. AMLODIPINE-VALSARTAN [Concomitant]
     Active Substance: AMLODIPINE\VALSARTAN
  10. MAGNESIUM [Concomitant]
     Active Substance: MAGNESIUM
  11. BYSTOLIC [Concomitant]
     Active Substance: NEBIVOLOL HYDROCHLORIDE
  12. IRESSA [Suspect]
     Active Substance: GEFITINIB
     Indication: LUNG NEOPLASM MALIGNANT
     Route: 048
  13. THYROID [Concomitant]
     Active Substance: LEVOTHYROXINE\LIOTHYRONINE
  14. IRESSA [Suspect]
     Active Substance: GEFITINIB
     Indication: LUNG NEOPLASM MALIGNANT
     Route: 048
     Dates: start: 20161003
  15. ALPRAZOLAM. [Concomitant]
     Active Substance: ALPRAZOLAM

REACTIONS (22)
  - Diarrhoea [Unknown]
  - Decreased appetite [Unknown]
  - Food allergy [Unknown]
  - Off label use [Unknown]
  - Trichorrhexis [Unknown]
  - Urine analysis abnormal [Not Recovered/Not Resolved]
  - Dry skin [Not Recovered/Not Resolved]
  - Acne [Unknown]
  - Rash [Not Recovered/Not Resolved]
  - Alopecia [Not Recovered/Not Resolved]
  - Skin exfoliation [Unknown]
  - Fatigue [Unknown]
  - Asthenia [Not Recovered/Not Resolved]
  - Nausea [Unknown]
  - Abdominal pain [Recovered/Resolved]
  - Vulvovaginal discomfort [Not Recovered/Not Resolved]
  - Rash generalised [Unknown]
  - Eye disorder [Unknown]
  - Throat irritation [Not Recovered/Not Resolved]
  - Weight decreased [Unknown]
  - Abdominal discomfort [Unknown]
  - Vomiting [Unknown]

NARRATIVE: CASE EVENT DATE: 20150908
